FAERS Safety Report 10998434 (Version 1)
Quarter: 2015Q2

REPORT INFORMATION
  Report Type: Spontaneous
  Country: FR (occurrence: None)
  Receive Date: 20150406
  Receipt Date: 20150406
  Transmission Date: 20150821
  Serious: Yes (Life-Threatening, Hospitalization)
  Sender: FDA-Public Use
  Company Number: 2802176

PATIENT
  Age: 70 Year
  Sex: Female
  Weight: 70 kg

DRUGS (8)
  1. NISISCO [Concomitant]
     Active Substance: HYDROCHLOROTHIAZIDE\VALSARTAN
  2. TAHOR [Concomitant]
     Active Substance: ATORVASTATIN CALCIUM
  3. CARBOPLATIN. [Suspect]
     Active Substance: CARBOPLATIN
     Indication: CHEMOTHERAPY
     Route: 042
     Dates: start: 20140924
  4. METFORMIN [Concomitant]
     Active Substance: METFORMIN HYDROCHLORIDE
  5. PACLITAXEL KABI [Suspect]
     Active Substance: PACLITAXEL
     Indication: CHEMOTHERAPY
     Route: 042
     Dates: start: 20140924
  6. JANUVIA [Concomitant]
     Active Substance: SITAGLIPTIN PHOSPHATE
  7. AMAREL [Concomitant]
     Active Substance: GLIMEPIRIDE
  8. INSULIN [Concomitant]
     Active Substance: INSULIN NOS

REACTIONS (8)
  - Respiratory distress [None]
  - Polyneuropathy [None]
  - Hypoventilation [None]
  - Diaphragmatic paralysis [None]
  - Oedema peripheral [None]
  - Respiratory acidosis [None]
  - Extravasation [None]
  - Erythema [None]

NARRATIVE: CASE EVENT DATE: 20150108
